FAERS Safety Report 10334964 (Version 1)
Quarter: 2014Q3

REPORT INFORMATION
  Report Type: Spontaneous
  Country: US (occurrence: US)
  Receive Date: 20140723
  Receipt Date: 20140723
  Transmission Date: 20150326
  Serious: No
  Sender: FDA-Public Use
  Company Number: US-009507513-1407USA008339

PATIENT

DRUGS (1)
  1. JANUMET [Suspect]
     Active Substance: METFORMIN HYDROCHLORIDE\SITAGLIPTIN PHOSPHATE
     Dosage: 50/1000MG, 1 TABLET TWICE DAILY WITH FOOD
     Route: 048
     Dates: start: 20111007

REACTIONS (4)
  - Wrong technique in drug usage process [Unknown]
  - Product taste abnormal [Unknown]
  - Dysphagia [Unknown]
  - Drug dose omission [Unknown]
